FAERS Safety Report 10229814 (Version 1)
Quarter: 2014Q2

REPORT INFORMATION
  Report Type: Spontaneous
  Country: US (occurrence: US)
  Receive Date: 20140611
  Receipt Date: 20140611
  Transmission Date: 20141212
  Serious: Yes (Hospitalization)
  Sender: FDA-Public Use
  Company Number: US-SHIRE-US201402829

PATIENT
  Age: 21 Year
  Sex: Female

DRUGS (2)
  1. CINRYZE [Suspect]
     Indication: HEREDITARY ANGIOEDEMA
     Dosage: 1000 UNITS, OTHER (EVERY 3-4 DAYS)
     Route: 042
     Dates: start: 20130217
  2. CINRYZE [Suspect]
     Indication: PROPHYLAXIS

REACTIONS (1)
  - Suicidal ideation [Unknown]
